FAERS Safety Report 5368053-4 (Version None)
Quarter: 2007Q2

REPORT INFORMATION
  Report Type: 
  Country: None (occurrence: None)
  Receive Date: 20070622
  Receipt Date: 20070612
  Transmission Date: 20071010
  Serious: Yes (Other)
  Sender: FDA-Public Use
  Company Number: US-PFIZER INC-2007049155

PATIENT
  Sex: Male
  Weight: 95.454 kg

DRUGS (4)
  1. CHANTIX [Suspect]
     Indication: SMOKING CESSATION THERAPY
     Dates: start: 20070601, end: 20070610
  2. WELLBUTRIN [Concomitant]
  3. KLONOPIN [Concomitant]
  4. ZYPREXA [Concomitant]

REACTIONS (7)
  - ANXIETY [None]
  - CONVERSION DISORDER [None]
  - DEREALISATION [None]
  - HALLUCINATION [None]
  - PANIC ATTACK [None]
  - PARANOIA [None]
  - SEROTONIN SYNDROME [None]
